FAERS Safety Report 10099957 (Version 2)
Quarter: 2014Q2

REPORT INFORMATION
  Report Type: Spontaneous
  Country: DE (occurrence: DE)
  Receive Date: 20140423
  Receipt Date: 20140519
  Transmission Date: 20141212
  Serious: Yes (Other)
  Sender: FDA-Public Use
  Company Number: DE-B.I. PHARMACEUTICALS,INC./RIDGEFIELD-2014-BI-16843DE

PATIENT
  Sex: Male
  Weight: 105 kg

DRUGS (10)
  1. MICARDIS [Suspect]
     Indication: HYPERTENSION
     Dosage: 80 MG
     Route: 048
     Dates: start: 201104
  2. MICARDIS [Suspect]
     Dosage: 40 MG
     Route: 065
     Dates: start: 2006, end: 2007
  3. ESBRIET [Concomitant]
     Route: 065
     Dates: start: 201401
  4. ISOPROLOL [Concomitant]
     Route: 065
  5. TAMSOLUSIN [Concomitant]
     Dosage: STRENGTH: 0.4
     Route: 065
  6. FINASTERID [Concomitant]
     Dosage: STRENGTH:5MG 18
     Route: 065
  7. FINASTERID [Concomitant]
     Dosage: DOSE PER APPLICATION: 5MG 18
     Route: 065
  8. SALBUTAMOL [Concomitant]
     Route: 065
     Dates: start: 201205
  9. FOSTER [Concomitant]
     Dosage: 2 ANZ
     Route: 055
     Dates: start: 201312
  10. PANTOPRAZOL [Concomitant]
     Route: 065

REACTIONS (4)
  - Idiopathic pulmonary fibrosis [Not Recovered/Not Resolved]
  - Emphysema [Not Recovered/Not Resolved]
  - Pulmonary function test decreased [Not Recovered/Not Resolved]
  - Dyspnoea [Not Recovered/Not Resolved]
